FAERS Safety Report 12632592 (Version 2)
Quarter: 2016Q3

REPORT INFORMATION
  Report Type: Spontaneous
  Country: US (occurrence: US)
  Receive Date: 20160808
  Receipt Date: 20160808
  Transmission Date: 20161109
  Serious: No
  Sender: FDA-Public Use
  Company Number: US-BEH-2015056131

PATIENT
  Sex: Male
  Weight: 32 kg

DRUGS (10)
  1. VENTOLIN [Concomitant]
     Active Substance: ALBUTEROL SULFATE
  2. LORATADINE. [Concomitant]
     Active Substance: LORATADINE
  3. HIZENTRA [Suspect]
     Active Substance: HUMAN IMMUNOGLOBULIN G
     Indication: HYPOGLOBULINAEMIA
     Dosage: STRENGTH OF DOSAGE FORM: 4G 20 ML VIAL
     Route: 058
  4. DIPHENHYDRAMINE. [Concomitant]
     Active Substance: DIPHENHYDRAMINE
  5. L-M-X [Concomitant]
  6. HIZENTRA [Suspect]
     Active Substance: HUMAN IMMUNOGLOBULIN G
     Indication: SELECTIVE IGG SUBCLASS DEFICIENCY
     Dosage: STRENGTH OF DOSAGE FORM: 4G 20 ML VIAL
     Route: 058
  7. HYDROCORTISONE. [Concomitant]
     Active Substance: HYDROCORTISONE
  8. LIDICAINE/PRILOCAINE [Concomitant]
  9. EPIPEN [Concomitant]
     Active Substance: EPINEPHRINE
  10. CHILDRENS TYLENOL [Concomitant]
     Active Substance: ACETAMINOPHEN

REACTIONS (1)
  - Administration site scar [Unknown]
